FAERS Safety Report 9997057 (Version 2)
Quarter: 2014Q1

REPORT INFORMATION
  Report Type: Report from Study
  Country: JP (occurrence: JP)
  Receive Date: 20140311
  Receipt Date: 20140311
  Transmission Date: 20141002
  Serious: Yes (Death, Life-Threatening, Hospitalization)
  Sender: FDA-Public Use
  Company Number: JP-SA-THYM-1002821

PATIENT
  Age: 27 Year
  Sex: Male
  Weight: 57 kg

DRUGS (20)
  1. THYMOGLOBULINE [Suspect]
     Indication: GRAFT VERSUS HOST DISEASE
     Dosage: 125 MG, QD
     Route: 042
     Dates: start: 20110530, end: 20110531
  2. THYMOGLOBULINE [Suspect]
     Indication: GRAFT VERSUS HOST DISEASE
     Dosage: 50 MG, QD
     Route: 042
     Dates: start: 20110617, end: 20110617
  3. URSODEOXYCHOLIC ACID [Concomitant]
     Indication: LYMPHOCYTIC INFILTRATION
     Dosage: UNK
     Dates: start: 20110525, end: 20110610
  4. ACICLOVIR [Concomitant]
     Indication: INFECTION PROPHYLAXIS
     Dosage: UNK
     Dates: start: 20110525, end: 20110715
  5. FAMOTIDINE [Concomitant]
     Indication: GASTRITIS PROPHYLAXIS
     Dosage: UNK
     Dates: start: 20110510, end: 20110610
  6. FAMOTIDINE [Concomitant]
     Indication: GASTRITIS PROPHYLAXIS
     Dosage: UNK
     Dates: start: 20110620, end: 20110717
  7. REBAMIPIDE [Concomitant]
     Indication: GASTRITIS PROPHYLAXIS
     Dosage: UNK
     Dates: start: 20110526, end: 20110610
  8. MICAFUNGIN SODIUM [Concomitant]
     Indication: FUNGAL INFECTION
     Dosage: UNK
     Dates: start: 20110526, end: 20110620
  9. DALTEPARIN SODIUM [Concomitant]
     Indication: PROPHYLAXIS
     Dosage: UNK
     Dates: start: 20110525, end: 20110610
  10. METHYLPREDNISOLONE SODIUM SUCCINATE [Concomitant]
     Indication: PROPHYLAXIS AGAINST GRAFT VERSUS HOST DISEASE
     Dosage: UNK
     Dates: start: 20110306, end: 20110717
  11. METHYLPREDNISOLONE SODIUM SUCCINATE [Concomitant]
     Indication: PREMEDICATION
     Dosage: UNK
     Dates: start: 20110306, end: 20110717
  12. METHYLPREDNISOLONE SODIUM SUCCINATE [Concomitant]
     Indication: PROPHYLAXIS AGAINST GRAFT VERSUS HOST DISEASE
     Dosage: UNK
     Dates: start: 20110530, end: 20110531
  13. METHYLPREDNISOLONE SODIUM SUCCINATE [Concomitant]
     Indication: PREMEDICATION
     Dosage: UNK
     Dates: start: 20110530, end: 20110531
  14. OMEPRAZOLE [Concomitant]
     Indication: GASTRITIS PROPHYLAXIS
     Dosage: UNK
     Dates: start: 20110610, end: 20110619
  15. METAMIZOLE SODIUM [Concomitant]
     Indication: PREMEDICATION
     Dosage: UNK
     Dates: start: 20110617, end: 20110617
  16. DEXCHLORPHENIRAMINE MALEATE [Concomitant]
     Indication: PREMEDICATION
     Dosage: UNK
     Dates: start: 20110617, end: 20110617
  17. FLUCONAZOLE [Concomitant]
     Indication: ANTIFUNGAL PROPHYLAXIS
     Dosage: UNK
     Dates: start: 20110621, end: 20110712
  18. TACROLIMUS [Concomitant]
     Indication: PROPHYLAXIS AGAINST GRAFT VERSUS HOST DISEASE
     Dosage: UNK
     Dates: start: 20110531, end: 20110718
  19. RED BLOOD CELLS, CONCENTRATED [Concomitant]
     Indication: ANAEMIA
     Dosage: UNK
     Dates: end: 20110717
  20. PLATELETS, HUMAN BLOOD [Concomitant]
     Indication: PLATELET COUNT DECREASED
     Dosage: UNK
     Dates: end: 20110709

REACTIONS (21)
  - Pneumonia staphylococcal [Recovered/Resolved]
  - Infection [Not Recovered/Not Resolved]
  - Pyrexia [Recovered/Resolved]
  - Stomatitis [Recovered/Resolved]
  - Mononeuropathy multiplex [Not Recovered/Not Resolved]
  - Pleural effusion [Recovered/Resolved]
  - Cough [Not Recovered/Not Resolved]
  - Hypoalbuminaemia [Not Recovered/Not Resolved]
  - Thrombotic microangiopathy [Fatal]
  - Gastrointestinal haemorrhage [Fatal]
  - Renal impairment [Fatal]
  - Blood pressure decreased [Recovered/Resolved]
  - Diarrhoea [Not Recovered/Not Resolved]
  - Graft versus host disease [Not Recovered/Not Resolved]
  - Non-Hodgkin^s lymphoma [Fatal]
  - White blood cell count decreased [Recovered/Resolved]
  - Coagulopathy [Not Recovered/Not Resolved]
  - Venoocclusive liver disease [Recovered/Resolved]
  - Fluid retention [Recovered/Resolved]
  - Renal impairment [Recovered/Resolved]
  - Dermatitis exfoliative [Not Recovered/Not Resolved]
